FAERS Safety Report 15135970 (Version 1)
Quarter: 2018Q3

REPORT INFORMATION
  Report Type: Spontaneous
  Country: US (occurrence: US)
  Receive Date: 20180712
  Receipt Date: 20180712
  Transmission Date: 20181010
  Serious: Yes (Death)
  Sender: FDA-Public Use
  Company Number: US-LA JOLLA PHARMACEUTICAL COMPANY-0000251

PATIENT
  Sex: Female

DRUGS (1)
  1. GIAPREZA [Suspect]
     Active Substance: ANGIOTENSIN II
     Indication: SEPSIS
     Dosage: 2.5 MG/ML, UNK
     Route: 042
     Dates: start: 2018

REACTIONS (1)
  - Death [Fatal]
